FAERS Safety Report 9932516 (Version 2)
Quarter: 2014Q1

REPORT INFORMATION
  Report Type: Spontaneous
  Country: DE (occurrence: None)
  Receive Date: 20140226
  Receipt Date: 20140304
  Transmission Date: 20141002
  Serious: Yes (Other)
  Sender: FDA-Public Use
  Company Number: AUR-APL-2014-01950

PATIENT
  Age: 67 Year
  Sex: 0

DRUGS (2)
  1. SIMVASTATIN (SIMVASTATIN) [Suspect]
     Indication: BLOOD CHOLESTEROL INCREASED
  2. INSULIN (INSULIN) [Concomitant]

REACTIONS (5)
  - Road traffic accident [None]
  - Dizziness [None]
  - Panic reaction [None]
  - Blood count abnormal [None]
  - Anxiety [None]
